FAERS Safety Report 6883367-4 (Version None)
Quarter: 2010Q3

REPORT INFORMATION
  Report Type: 
  Country: None (occurrence: None)
  Receive Date: 20100727
  Receipt Date: 20080527
  Transmission Date: 20110219
  Serious: Yes (Hospitalization, Other)
  Sender: FDA-Public Use
  Company Number: US-PFIZER INC-2006096419

PATIENT
  Sex: Male
  Weight: 97.5 kg

DRUGS (2)
  1. CELEBREX [Suspect]
     Dates: start: 19990325
  2. BEXTRA [Suspect]
     Dosage: ONCE OR TWICE DAILY

REACTIONS (6)
  - CHEST PAIN [None]
  - CORONARY ARTERY DISEASE [None]
  - MYOCARDIAL INFARCTION [None]
  - NERVOUSNESS [None]
  - PULMONARY EMBOLISM [None]
  - THROMBOSIS [None]
